FAERS Safety Report 10082974 (Version 1)
Quarter: 2014Q2

REPORT INFORMATION
  Report Type: Spontaneous
  Country: FR (occurrence: FR)
  Receive Date: 20140417
  Receipt Date: 20140417
  Transmission Date: 20141212
  Serious: Yes (Life-Threatening, Hospitalization, Other)
  Sender: FDA-Public Use
  Company Number: FR-PFIZER INC-2014107107

PATIENT
  Age: 70 Year
  Sex: Male

DRUGS (12)
  1. CORDARONE [Suspect]
     Dosage: 200 MG, DAILY
     Route: 048
  2. PRADAXA [Suspect]
     Dosage: 150 MG, 2X/DAY
     Route: 048
     Dates: start: 20140324, end: 20140328
  3. PRADAXA [Suspect]
     Dosage: 110 MG, 2X/DAY
     Route: 048
     Dates: start: 20140329, end: 20140330
  4. LODINE [Concomitant]
     Dosage: UNK
  5. DAFALGAN [Concomitant]
     Dosage: UNK
  6. DAFALGAN CODEINE [Concomitant]
     Dosage: UNK
  7. BRICANYL [Concomitant]
     Dosage: UNK
  8. ATROVENT [Concomitant]
     Dosage: UNK
  9. AUGMENTIN [Concomitant]
     Dosage: UNK
  10. KARDEGIC [Concomitant]
     Dosage: UNK
  11. COVERSYL [Concomitant]
     Dosage: UNK
  12. TEMERIT [Concomitant]
     Dosage: UNK

REACTIONS (5)
  - Rectal haemorrhage [Not Recovered/Not Resolved]
  - Shock haemorrhagic [Recovering/Resolving]
  - Dyspnoea [Unknown]
  - Pulmonary oedema [Unknown]
  - Coronary artery stenosis [Unknown]
